FAERS Safety Report 9663576 (Version 1)
Quarter: 2013Q4

REPORT INFORMATION
  Report Type: Spontaneous
  Country: US (occurrence: US)
  Receive Date: 20131101
  Receipt Date: 20131101
  Transmission Date: 20140711
  Serious: No
  Sender: FDA-Public Use
  Company Number: US-PFIZER INC-2013311483

PATIENT
  Age: 82 Year
  Sex: Female

DRUGS (9)
  1. NEURONTIN [Suspect]
     Dosage: UNK
  2. MORPHINE SULFATE [Suspect]
     Dosage: UNK
  3. SIMVASTATIN [Suspect]
     Dosage: UNK
  4. TRAZODONE HCL [Suspect]
     Dosage: UNK
  5. CODEINE [Suspect]
     Dosage: UNK
  6. AMBIEN [Suspect]
     Dosage: UNK
  7. PLAVIX [Suspect]
     Dosage: UNK
  8. MEVACOR [Suspect]
     Dosage: UNK
  9. PAXIL [Suspect]
     Dosage: UNK

REACTIONS (1)
  - Drug hypersensitivity [Unknown]
